FAERS Safety Report 4973215-1 (Version None)
Quarter: 2006Q2

REPORT INFORMATION
  Report Type: 
  Country: None (occurrence: None)
  Receive Date: 20060414
  Receipt Date: 20051110
  Transmission Date: 20061013
  Serious: Yes (Hospitalization, Disabling, Other)
  Sender: FDA-Public Use
  Company Number: US-MERCK-0511USA01896

PATIENT
  Age: 53 Year
  Sex: Male
  Weight: 94 kg

DRUGS (10)
  1. VIOXX [Suspect]
     Indication: ARTHRALGIA
     Route: 048
     Dates: start: 20020701, end: 20021206
  2. HYZAAR [Concomitant]
     Indication: HYPERTENSION
     Route: 065
     Dates: start: 20021201, end: 20050101
  3. TOPROL-XL [Concomitant]
     Indication: HYPERTENSION
     Route: 065
     Dates: start: 19990101
  4. ALLEGRA [Concomitant]
     Indication: HYPERSENSITIVITY
     Route: 065
  5. ASPIRIN [Concomitant]
     Indication: PROPHYLAXIS
     Route: 065
     Dates: start: 19950101, end: 20020101
  6. ALLOPURINOL [Concomitant]
     Indication: GOUT
     Route: 065
  7. FLONASE [Concomitant]
     Indication: HYPERSENSITIVITY
     Route: 065
  8. NEURONTIN [Concomitant]
     Indication: PAIN
     Route: 065
  9. OXYCONTIN [Concomitant]
     Indication: PAIN
     Route: 065
  10. ALBUTEROL [Concomitant]
     Indication: ASTHMA
     Route: 065

REACTIONS (22)
  - ABDOMINAL PAIN UPPER [None]
  - ANXIETY [None]
  - APHASIA [None]
  - ARTHROPATHY [None]
  - BRONCHITIS [None]
  - CARDIAC FAILURE CONGESTIVE [None]
  - CEREBELLAR INFARCTION [None]
  - CEREBRAL ISCHAEMIA [None]
  - CEREBROVASCULAR ACCIDENT [None]
  - CERVICOBRACHIAL SYNDROME [None]
  - CHEST PAIN [None]
  - DEPRESSION [None]
  - GASTROINTESTINAL ULCER HAEMORRHAGE [None]
  - HYPERTENSIVE CRISIS [None]
  - LUMBAR RADICULOPATHY [None]
  - MYOCARDIAL ISCHAEMIA [None]
  - SEPSIS [None]
  - SLEEP APNOEA SYNDROME [None]
  - UPPER RESPIRATORY TRACT INFECTION [None]
  - URINARY RETENTION [None]
  - VASCULAR DEMENTIA [None]
  - VERTIGO [None]
